FAERS Safety Report 4936759-4 (Version None)
Quarter: 2006Q1

REPORT INFORMATION
  Report Type: 
  Country: None (occurrence: None)
  Receive Date: 20060302
  Receipt Date: 20060221
  Transmission Date: 20060701
  Serious: Yes (Death)
  Sender: FDA-Public Use
  Company Number: 2006BH003664

PATIENT
  Age: 74 Year
  Sex: Male

DRUGS (4)
  1. RECOMBINATE [Suspect]
     Indication: FACTOR VIII DEFICIENCY
     Dosage: SEE IMAGE
  2. FLUOROURACIL [Concomitant]
  3. CALCIUM FOLINATE [Concomitant]
  4. ENOXAPARIN SODIUM [Concomitant]

REACTIONS (14)
  - CARDIAC ARREST [None]
  - CARDIO-RESPIRATORY ARREST [None]
  - FALL [None]
  - GENERAL PHYSICAL HEALTH DETERIORATION [None]
  - IATROGENIC INJURY [None]
  - LYMPHADENOPATHY [None]
  - MEDIASTINAL HAEMATOMA [None]
  - PNEUMOMEDIASTINUM [None]
  - PNEUMOTHORAX [None]
  - PULMONARY EMBOLISM [None]
  - RECTAL NEOPLASM [None]
  - TACHYCARDIA [None]
  - VENA CAVA THROMBOSIS [None]
  - WOUND INFECTION [None]
